FAERS Safety Report 8175863-7 (Version None)
Quarter: 2012Q1

REPORT INFORMATION
  Report Type: 
  Country: None (occurrence: None)
  Receive Date: 20120228
  Receipt Date: 20120217
  Transmission Date: 20120608
  Serious: Yes (Death)
  Sender: FDA-Public Use
  Company Number: 2012SP009044

PATIENT
  Age: 82 Year
  Sex: Male
  Weight: 65 kg

DRUGS (6)
  1. SULFAMETHOXAZOLE AND TRIMETHOPRIM [Concomitant]
  2. TEMODAL [Suspect]
     Indication: OLIGODENDROGLIOMA
     Dosage: 150 MG/M2;QD;PO ; 200 MG/M2;QD;PO ; 200 MG/M2;QD;PO
     Route: 048
     Dates: start: 20061024, end: 20070825
  3. TEMODAL [Suspect]
     Indication: OLIGODENDROGLIOMA
     Dosage: 150 MG/M2;QD;PO ; 200 MG/M2;QD;PO ; 200 MG/M2;QD;PO
     Route: 048
     Dates: start: 20060926, end: 20060930
  4. TEMODAL [Suspect]
     Indication: OLIGODENDROGLIOMA
     Dosage: 150 MG/M2;QD;PO ; 200 MG/M2;QD;PO ; 200 MG/M2;QD;PO
     Route: 048
     Dates: start: 20090217, end: 20090613
  5. RHYTHMY /01029802/ [Concomitant]
  6. SELBEX [Concomitant]

REACTIONS (2)
  - LUNG NEOPLASM MALIGNANT [None]
  - NEOPLASM PROGRESSION [None]
